FAERS Safety Report 14484254 (Version 1)
Quarter: 2018Q1

REPORT INFORMATION
  Report Type: Spontaneous
  Country: US (occurrence: US)
  Receive Date: 20180205
  Receipt Date: 20180205
  Transmission Date: 20180509
  Serious: Yes (Death, Life-Threatening, Hospitalization, Other)
  Sender: FDA-Public Use
  Company Number: US-ACCORD-063103

PATIENT
  Age: 78 Year
  Sex: Male
  Weight: 77 kg

DRUGS (14)
  1. DOCUSATE [Concomitant]
     Active Substance: DOCUSATE
     Dates: start: 20160809
  2. DRONABINOL. [Concomitant]
     Active Substance: DRONABINOL
     Dates: start: 20170920
  3. ONDANSETRON [Concomitant]
     Active Substance: ONDANSETRON
     Dates: start: 20161221
  4. TALAZOPARIB [Suspect]
     Active Substance: TALAZOPARIB
     Indication: ACUTE MYELOID LEUKAEMIA
     Dosage: 0.5 MG ONCE DAILY
     Route: 048
     Dates: start: 20171030, end: 20180104
  5. TAMSULOSIN/TAMSULOSIN HYDROCHLORIDE [Concomitant]
     Dates: start: 20160824
  6. ALREX [Concomitant]
     Active Substance: LOTEPREDNOL ETABONATE
     Dates: start: 20170905
  7. GUAIFENESIN. [Concomitant]
     Active Substance: GUAIFENESIN
     Dates: start: 20160809
  8. RANITIDINE. [Concomitant]
     Active Substance: RANITIDINE
     Dates: start: 201704
  9. DECITABINE. [Suspect]
     Active Substance: DECITABINE
     Indication: ACUTE MYELOID LEUKAEMIA
     Dosage: CYCLE 1: 30-OCT-2017 TO 03-NOV-2017 AT THE DOSE OF 42 MG ONCE DAILY FOR THE DURATION OF 5 DAYS
     Route: 042
     Dates: start: 20171030, end: 20180104
  10. IPRATROPIUM/SALBUTAMOL [Concomitant]
     Dates: start: 20170807
  11. MIRTAZAPINE. [Concomitant]
     Active Substance: MIRTAZAPINE
     Dates: start: 20170207
  12. DEXAMETHASONE/NEOMYCIN/POLYMYXIN B [Concomitant]
     Dates: start: 20170814
  13. ENZALUTAMIDE [Concomitant]
     Active Substance: ENZALUTAMIDE
     Dates: start: 20171018
  14. BIFIDOBACTERIUM LACTIS [Concomitant]
     Active Substance: BIFIDOBACTERIUM ANIMALIS LACTIS
     Dates: start: 201709

REACTIONS (7)
  - Condition aggravated [Unknown]
  - Haemorrhage intracranial [Not Recovered/Not Resolved]
  - Cerebrovascular accident [Not Recovered/Not Resolved]
  - Respiratory failure [Not Recovered/Not Resolved]
  - Septic shock [Fatal]
  - Cardiac tamponade [Not Recovered/Not Resolved]
  - Febrile neutropenia [Unknown]

NARRATIVE: CASE EVENT DATE: 20180109
